FAERS Safety Report 6216182-5 (Version None)
Quarter: 2009Q2

REPORT INFORMATION
  Report Type: 
  Country: None (occurrence: None)
  Receive Date: 20090605
  Receipt Date: 20090527
  Transmission Date: 20091009
  Serious: Yes (Life-Threatening, Hospitalization)
  Sender: FDA-Public Use
  Company Number: IT-NOVOPROD-284705

PATIENT
  Sex: Male
  Weight: 97 kg

DRUGS (7)
  1. ACTRAPID NOVOLET HM(GE) [Suspect]
     Indication: INSULIN-REQUIRING TYPE 2 DIABETES MELLITUS
     Dosage: 34 IU, QD
     Route: 065
     Dates: start: 20080201, end: 20090105
  2. LANTUS [Concomitant]
     Dosage: 22 IU, UNK
     Route: 058
     Dates: start: 20080509
  3. DILATREND [Concomitant]
     Dosage: 9.375 MG, UNK
     Route: 048
  4. LASIX [Concomitant]
     Dosage: 25 MG, UNK
     Route: 048
  5. TORVAST [Concomitant]
     Dosage: 20 MG, UNK
     Route: 048
  6. ASPIRIN [Concomitant]
     Dosage: 100 MG, UNK
     Route: 048
  7. NITRO-DUR [Concomitant]
     Dosage: 10 MG, UNK
     Route: 062

REACTIONS (4)
  - BRONCHITIS [None]
  - FALL [None]
  - SOPOR [None]
  - TRANSIENT ISCHAEMIC ATTACK [None]
